FAERS Safety Report 19108948 (Version 1)
Quarter: 2021Q2

REPORT INFORMATION
  Report Type: Spontaneous
  Country: ES (occurrence: ES)
  Receive Date: 20210409
  Receipt Date: 20210409
  Transmission Date: 20210717
  Serious: Yes (Hospitalization, Other)
  Sender: FDA-Public Use
  Company Number: ES-SUN PHARMACEUTICAL INDUSTRIES LTD-2021RR-290427

PATIENT
  Age: 42 Year
  Sex: Male

DRUGS (4)
  1. AMOXICILLIN/CLAVULANIC ACID [Suspect]
     Active Substance: AMOXICILLIN\CLAVULANIC ACID
     Indication: CRYPTOCOCCOSIS
     Dosage: 1G/200MG, TID
     Route: 065
  2. CIPROFLOXACIN. [Suspect]
     Active Substance: CIPROFLOXACIN
     Indication: CRYPTOCOCCOSIS
     Dosage: 500 MILLIGRAM, BID
     Route: 065
  3. FLUCONAZOLE. [Suspect]
     Active Substance: FLUCONAZOLE
     Indication: CRYPTOCOCCOSIS
     Dosage: 800 MILLIGRAM, DAILY
     Route: 048
  4. LIPOSOMAL AMPHOTERICIN B [Concomitant]
     Active Substance: AMPHOTERICIN B
     Indication: CRYPTOCOCCOSIS
     Dosage: 10 MILLIGRAM/KILOGRAM, TOTAL DOSE 870 MG INFUSED OVER 3 HOURS
     Route: 065

REACTIONS (3)
  - Abscess drainage [Unknown]
  - Condition aggravated [Recovered/Resolved]
  - Rash maculo-papular [Recovered/Resolved]
